FAERS Safety Report 5278661-7 (Version None)
Quarter: 2007Q1

REPORT INFORMATION
  Report Type: 
  Country: None (occurrence: None)
  Receive Date: 20070321
  Receipt Date: 20070309
  Transmission Date: 20070707
  Serious: Yes (Hospitalization)
  Sender: FDA-Public Use
  Company Number: A-CH2007-14507

PATIENT
  Age: 74 Year
  Sex: Male

DRUGS (12)
  1. TRACLEER [Suspect]
     Indication: PULMONARY HYPERTENSION
  2. SILDENAFIL CITRATE [Concomitant]
  3. SINTROM [Concomitant]
  4. ALDACTONE [Concomitant]
  5. LASIX [Concomitant]
  6. QUESTRAN [Concomitant]
  7. FERROUS SULFATE TAB [Concomitant]
  8. ATARAX [Concomitant]
  9. NEXIUM [Concomitant]
  10. CLORAZEPATE DIPOTASSIUM [Concomitant]
  11. TRAMADOL HCL [Concomitant]
  12. ACETAMINOPHEN [Concomitant]

REACTIONS (6)
  - CYTOLYTIC HEPATITIS [None]
  - HEPATIC CONGESTION [None]
  - LUNG DISORDER [None]
  - METABOLIC ACIDOSIS [None]
  - PULMONARY EMBOLISM [None]
  - RESPIRATORY DISORDER [None]
